FAERS Safety Report 4274386-5 (Version None)
Quarter: 2004Q1

REPORT INFORMATION
  Report Type: 
  Country: None (occurrence: None)
  Receive Date: 20040120
  Receipt Date: 20030709
  Transmission Date: 20041129
  Serious: Yes (Hospitalization)
  Sender: FDA-Public Use
  Company Number: WAES 0307FRA00026

PATIENT
  Age: 63 Year
  Sex: Male

DRUGS (7)
  1. ALPRAZOLAM [Concomitant]
     Route: 048
  2. CLOXACILLIN SODIUM [Concomitant]
     Route: 048
     Dates: start: 20030410, end: 20030412
  3. DIGOXIN [Concomitant]
     Route: 048
  4. FLUOXETINE HYDROCHLORIDE [Concomitant]
     Route: 048
  5. FUROSEMIDE [Concomitant]
     Route: 048
  6. STROMECTOL [Suspect]
     Indication: ACARODERMATITIS
     Route: 048
     Dates: start: 20030407, end: 20030407
  7. SULPIRIDE [Concomitant]
     Route: 048

REACTIONS (8)
  - C-REACTIVE PROTEIN INCREASED [None]
  - DRUG ERUPTION [None]
  - EOSINOPHIL COUNT INCREASED [None]
  - OEDEMA PERIPHERAL [None]
  - PYREXIA [None]
  - RASH ERYTHEMATOUS [None]
  - RASH PAPULOSQUAMOUS [None]
  - XEROSIS [None]
